FAERS Safety Report 7705817-3 (Version None)
Quarter: 2011Q3

REPORT INFORMATION
  Report Type: 
  Country: None (occurrence: None)
  Receive Date: 20110824
  Receipt Date: 20110815
  Transmission Date: 20111222
  Serious: Yes (Hospitalization, Disabling, Other)
  Sender: FDA-Public Use
  Company Number: CA-ELI_LILLY_AND_COMPANY-CA201108004597

PATIENT
  Sex: Male

DRUGS (7)
  1. ZYPREXA ZYDIS [Suspect]
     Indication: BIPOLAR DISORDER
     Dosage: 10 MG, UNK
  2. TEGRETOL [Concomitant]
  3. ZYPREXA [Suspect]
     Dosage: 5 MG, UNK
  4. ZOPICLONE [Concomitant]
  5. ZYPREXA [Suspect]
     Indication: BIPOLAR DISORDER
     Dosage: 10 MG, EACH EVENING
     Dates: start: 19970123
  6. INVEGA [Concomitant]
  7. ASPIRIN [Concomitant]

REACTIONS (19)
  - HYPERTENSION [None]
  - SLEEP APNOEA SYNDROME [None]
  - HEPATIC STEATOSIS [None]
  - CELLULITIS [None]
  - SKIN ULCER [None]
  - PERIPHERAL ARTERY ANEURYSM [None]
  - DIABETES MELLITUS [None]
  - MOBILITY DECREASED [None]
  - HYPERLIPIDAEMIA [None]
  - AMPUTATION [None]
  - WEIGHT INCREASED [None]
  - PERIPHERAL ARTERIAL OCCLUSIVE DISEASE [None]
  - TYPE 2 DIABETES MELLITUS [None]
  - SEXUAL DYSFUNCTION [None]
  - NEUROPATHY PERIPHERAL [None]
  - DEPRESSION [None]
  - PERIPHERAL VASCULAR DISORDER [None]
  - HEMIPARESIS [None]
  - ALBUMINURIA [None]
